FAERS Safety Report 6946534-7 (Version None)
Quarter: 2010Q3

REPORT INFORMATION
  Report Type: 
  Country: None (occurrence: None)
  Receive Date: 20100824
  Receipt Date: 20100811
  Transmission Date: 20110219
  Serious: Yes (Other)
  Sender: FDA-Public Use
  Company Number: ENTC2010-0201

PATIENT
  Age: 78 Year
  Sex: Male

DRUGS (15)
  1. STALEVO 100 [Suspect]
     Indication: PARKINSON'S DISEASE
     Dosage: 6 DOSAGE FORM, 6 IN 1 D, 5 DOSAGE FORM, 5 IN 1 D, 6 DOSAGE FORM, 6 IN 1 D
  2. COMTAN [Suspect]
  3. LEVODOPA (LEVODOPA) [Suspect]
     Dosage: 1200 MG
  4. REQUIP XL [Suspect]
     Dosage: 2 MG DAILY
  5. METOPROLOL SUCCINATE [Concomitant]
  6. FLOMAX [Concomitant]
  7. TRIAMTERENE AND HYDROCHLOROTHIAZID (HYDROCHLOROTHIAZIDE) [Concomitant]
  8. ARICEPT [Concomitant]
  9. SEROQUEL [Concomitant]
  10. APOXYN (APOMORPHINE HYDROCHLORIDE) [Concomitant]
  11. HYDROCHLORIDE (HYDROCHLORIC ACID) [Concomitant]
  12. XALATAN [Concomitant]
  13. REMERON [Concomitant]
  14. TIGAN [Concomitant]
  15. TERAZOSIN HCL [Concomitant]

REACTIONS (17)
  - ABNORMAL BEHAVIOUR [None]
  - AGGRESSION [None]
  - BALANCE DISORDER [None]
  - COGNITIVE DISORDER [None]
  - DEMENTIA [None]
  - DRUG EFFECT DECREASED [None]
  - DRUG EFFECT DELAYED [None]
  - DYSPHONIA [None]
  - GAIT DISTURBANCE [None]
  - HALLUCINATION, VISUAL [None]
  - HYPERTONIA [None]
  - INSOMNIA [None]
  - MEMORY IMPAIRMENT [None]
  - MIDDLE INSOMNIA [None]
  - MOVEMENT DISORDER [None]
  - PARANOIA [None]
  - POSTURE ABNORMAL [None]
